FAERS Safety Report 21773673 (Version 3)
Quarter: 2023Q1

REPORT INFORMATION
  Report Type: Spontaneous
  Country: US (occurrence: US)
  Receive Date: 20221223
  Receipt Date: 20230214
  Transmission Date: 20230418
  Serious: No
  Sender: FDA-Public Use
  Company Number: US-SA-SAC20221222001411

PATIENT
  Sex: Male
  Weight: 83 kg

DRUGS (4)
  1. DUPIXENT [Suspect]
     Active Substance: DUPILUMAB
     Indication: Dermatitis atopic
     Dosage: 300 MG, QOW
     Route: 058
     Dates: start: 2021
  2. LEVETIRACETAM [Concomitant]
     Active Substance: LEVETIRACETAM
     Dosage: UNK
  3. KEPPRA [Concomitant]
     Active Substance: LEVETIRACETAM
     Dosage: UNK
  4. ALUMINUM CHLORIDE [Concomitant]
     Active Substance: ALUMINUM CHLORIDE

REACTIONS (4)
  - Cough [Unknown]
  - Epistaxis [Unknown]
  - Nasal dryness [Unknown]
  - Injection site swelling [Unknown]
